FAERS Safety Report 25013045 (Version 1)
Quarter: 2025Q1

REPORT INFORMATION
  Report Type: Spontaneous
  Country: US (occurrence: US)
  Receive Date: 20250226
  Receipt Date: 20250226
  Transmission Date: 20250409
  Serious: No
  Sender: ELI LILLY AND COMPANY
  Company Number: US-ELI_LILLY_AND_COMPANY-US202502013191

PATIENT
  Age: 62 Year

DRUGS (10)
  1. MOUNJARO [Suspect]
     Active Substance: TIRZEPATIDE
     Indication: Weight control
     Route: 058
     Dates: start: 202405
  2. MOUNJARO [Suspect]
     Active Substance: TIRZEPATIDE
     Indication: Hepatic steatosis
  3. MOUNJARO [Suspect]
     Active Substance: TIRZEPATIDE
     Indication: Weight control
     Route: 058
     Dates: start: 202408
  4. MOUNJARO [Suspect]
     Active Substance: TIRZEPATIDE
     Indication: Weight control
     Route: 058
     Dates: start: 202408
  5. MOUNJARO [Suspect]
     Active Substance: TIRZEPATIDE
     Indication: Weight control
     Route: 058
     Dates: start: 202408
  6. MOUNJARO [Suspect]
     Active Substance: TIRZEPATIDE
     Indication: Weight control
     Route: 058
     Dates: start: 202408
  7. MOUNJARO [Suspect]
     Active Substance: TIRZEPATIDE
     Indication: Hepatic steatosis
     Route: 058
  8. MOUNJARO [Suspect]
     Active Substance: TIRZEPATIDE
     Indication: Hepatic steatosis
     Route: 058
  9. MOUNJARO [Suspect]
     Active Substance: TIRZEPATIDE
     Indication: Hepatic steatosis
     Route: 058
  10. MOUNJARO [Suspect]
     Active Substance: TIRZEPATIDE
     Indication: Hepatic steatosis
     Route: 058

REACTIONS (5)
  - Incorrect dose administered [Unknown]
  - Off label use [Unknown]
  - Decreased appetite [Unknown]
  - Eructation [Unknown]
  - Nausea [Unknown]

NARRATIVE: CASE EVENT DATE: 20240501
